FAERS Safety Report 10308235 (Version 3)
Quarter: 2014Q4

REPORT INFORMATION
  Report Type: Spontaneous
  Country: CA (occurrence: None)
  Receive Date: 20140711
  Receipt Date: 20141015
  Transmission Date: 20150528
  Serious: Yes (Disabling)
  Sender: FDA-Public Use
  Company Number: 2014-002030

PATIENT
  Age: 79 Year

DRUGS (1)
  1. ACTONEL [Suspect]
     Active Substance: RISEDRONATE SODIUM
     Indication: OSTEOPOROSIS
     Dosage: 150 MG, FREQUENCY UNKNOWN, ORAL
     Route: 048

REACTIONS (2)
  - Dyspepsia [None]
  - Abdominal discomfort [None]

NARRATIVE: CASE EVENT DATE: 2013
